FAERS Safety Report 9224540 (Version 1)
Quarter: 2013Q2

REPORT INFORMATION
  Report Type: Spontaneous
  Country: US (occurrence: None)
  Receive Date: 20130411
  Receipt Date: 20130411
  Transmission Date: 20140414
  Serious: Yes (Hospitalization)
  Sender: FDA-Public Use
  Company Number: None

PATIENT
  Age: 59 Year
  Sex: Female
  Weight: 72 kg

DRUGS (4)
  1. BEVACIZUMAB (RHUMAB VEGF) (704865) [Suspect]
  2. PEMETREXED [Suspect]
  3. FLUDROCORTISONE [Concomitant]
  4. HYDROCORTISONE [Concomitant]

REACTIONS (6)
  - Septic shock [None]
  - Fatigue [None]
  - Unresponsive to stimuli [None]
  - Hypoxia [None]
  - Mental status changes [None]
  - Renal failure acute [None]
